FAERS Safety Report 24184255 (Version 2)
Quarter: 2025Q3

REPORT INFORMATION
  Report Type: Spontaneous
  Country: US (occurrence: US)
  Receive Date: 20240807
  Receipt Date: 20250728
  Transmission Date: 20251020
  Serious: No
  Sender: SANOFI AVENTIS
  Company Number: US-SA-SAC20240801000031

PATIENT
  Age: 33 Year
  Sex: Male

DRUGS (1)
  1. ALGLUCOSIDASE ALFA [Suspect]
     Active Substance: ALGLUCOSIDASE ALFA
     Route: 065

REACTIONS (1)
  - Drug specific antibody present [Recovered/Resolved]

NARRATIVE: CASE EVENT DATE: 20240717
